FAERS Safety Report 7241378-3 (Version None)
Quarter: 2011Q1

REPORT INFORMATION
  Report Type: 
  Country: None (occurrence: None)
  Receive Date: 20110124
  Receipt Date: 20101213
  Transmission Date: 20110831
  Serious: Yes (Other)
  Sender: FDA-Public Use
  Company Number: AU-ROCHE-754238

PATIENT
  Sex: Female
  Weight: 20 kg

DRUGS (1)
  1. TAMIFLU [Suspect]
     Route: 065
     Dates: start: 20100929, end: 20101002

REACTIONS (2)
  - ABNORMAL BEHAVIOUR [None]
  - VOMITING [None]
